FAERS Safety Report 10656123 (Version 3)
Quarter: 2015Q3

REPORT INFORMATION
  Report Type: Spontaneous
  Country: US (occurrence: US)
  Receive Date: 20141216
  Receipt Date: 20150803
  Transmission Date: 20151125
  Serious: Yes (Hospitalization, Other)
  Sender: FDA-Public Use
  Company Number: US-BAYER-2014-183241

PATIENT
  Age: 27 Year
  Sex: Female
  Weight: 157.37 kg

DRUGS (5)
  1. PROZAC [Concomitant]
     Active Substance: FLUOXETINE HYDROCHLORIDE
     Dosage: UNK
     Dates: start: 20070227
  2. ADIPEX-P [Concomitant]
     Active Substance: PHENTERMINE HYDROCHLORIDE
     Indication: WEIGHT DECREASED
     Dosage: UNK
     Dates: start: 20070227
  3. MIRENA [Suspect]
     Active Substance: LEVONORGESTREL
     Indication: CONTRACEPTION
     Dosage: 20 MCG/24HR, CONT
     Route: 015
     Dates: start: 20050228, end: 20070305
  4. VICODIN [Concomitant]
     Active Substance: ACETAMINOPHEN\HYDROCODONE BITARTRATE
  5. IBUPROFEN. [Concomitant]
     Active Substance: IBUPROFEN

REACTIONS (15)
  - Injury [None]
  - Emotional distress [None]
  - Uterine perforation [None]
  - Device issue [None]
  - Anxiety [None]
  - Mental disorder [None]
  - Abdominal pain lower [None]
  - Device breakage [None]
  - Infertility female [None]
  - Depression [None]
  - Back pain [None]
  - Complication of device removal [None]
  - Genital haemorrhage [None]
  - Post-traumatic stress disorder [None]
  - Pelvic inflammatory disease [None]

NARRATIVE: CASE EVENT DATE: 2005
